FAERS Safety Report 9808882 (Version 2)
Quarter: 2014Q2

REPORT INFORMATION
  Report Type: Report from Study
  Country: US (occurrence: US)
  Receive Date: 20140110
  Receipt Date: 20140527
  Transmission Date: 20141212
  Serious: No
  Sender: FDA-Public Use
  Company Number: US-ALEXION-A201304414

PATIENT
  Sex: 0

DRUGS (10)
  1. SOLIRIS [Suspect]
     Indication: PAROXYSMAL NOCTURNAL HAEMOGLOBINURIA
     Dosage: 900 MG, Q2W
     Route: 042
     Dates: start: 20120412
  2. LEVOTHYROXINE [Concomitant]
     Indication: PRODUCT USED FOR UNKNOWN INDICATION
     Dosage: 112 MCG, QD
     Route: 065
     Dates: start: 20000101
  3. ASA [Concomitant]
     Indication: PRODUCT USED FOR UNKNOWN INDICATION
     Dosage: 80 MG, QD
     Route: 065
     Dates: start: 20081112
  4. CALCIUM [Concomitant]
     Indication: VITAMIN SUPPLEMENTATION
     Dosage: UNK, QD
     Route: 065
     Dates: start: 20081112
  5. FOLIC ACID [Concomitant]
     Indication: PRODUCT USED FOR UNKNOWN INDICATION
     Dosage: UNK, QD
     Route: 065
     Dates: start: 20081112
  6. PREDNISONE [Concomitant]
     Indication: STEROID THERAPY
     Dosage: 10 MG, QD
     Route: 065
     Dates: start: 20081112
  7. TRAZADOL [Concomitant]
     Indication: SLEEP DISORDER
     Dosage: 50 MG, HS
     Route: 065
     Dates: start: 20081112
  8. FERROUS SULPHATE                   /00023503/ [Concomitant]
     Indication: MINERAL SUPPLEMENTATION
     Dosage: UNK
     Route: 065
     Dates: start: 20130701
  9. MUCINEX [Concomitant]
     Indication: PRODUCT USED FOR UNKNOWN INDICATION
     Route: 065
  10. IBUPROFEN [Concomitant]
     Indication: PRODUCT USED FOR UNKNOWN INDICATION
     Route: 065

REACTIONS (6)
  - Respiratory tract infection [Unknown]
  - Throat irritation [Unknown]
  - Anaemia [Unknown]
  - Haemolysis [Unknown]
  - Dyspnoea [Unknown]
  - Menorrhagia [Unknown]
